FAERS Safety Report 6523915-7 (Version None)
Quarter: 2009Q4

REPORT INFORMATION
  Report Type: 
  Country: None (occurrence: None)
  Receive Date: 20091230
  Receipt Date: 20091230
  Transmission Date: 20100525
  Serious: No
  Sender: FDA-Public Use
  Company Number: None

PATIENT
  Age: 72 Year
  Sex: Female
  Weight: 59.8748 kg

DRUGS (9)
  1. COLD REMEDY GEL SWABS [Suspect]
     Dosage: SPORATIC FOR TWO YEARS 2 WINTERS AGO-ON GOING
  2. TENORMIN [Concomitant]
  3. HYDROCHLOROTHIAZIDE [Concomitant]
  4. MEDROL [Concomitant]
  5. PLAQUENIL [Concomitant]
  6. BONIVA [Concomitant]
  7. MULTI-VITAMIN [Concomitant]
  8. FISH OIL [Concomitant]
  9. CALCIUM [Concomitant]

REACTIONS (1)
  - HYPOGEUSIA [None]
